FAERS Safety Report 6884846-6 (Version None)
Quarter: 2010Q3

REPORT INFORMATION
  Report Type: 
  Country: None (occurrence: None)
  Receive Date: 20100729
  Receipt Date: 20071103
  Transmission Date: 20110219
  Serious: No
  Sender: FDA-Public Use
  Company Number: US-PFIZER INC-2007076157

PATIENT
  Age: 35 Year
  Sex: Female
  Weight: 45.36 kg

DRUGS (3)
  1. CELEBREX [Suspect]
     Indication: MUSCLE INJURY
     Dates: start: 20070911
  2. DRUG, UNSPECIFIED [Concomitant]
  3. SKELAXIN [Concomitant]

REACTIONS (5)
  - ASTHENIA [None]
  - HEART RATE INCREASED [None]
  - HYPOTENSION [None]
  - NAUSEA [None]
  - PALPITATIONS [None]
